FAERS Safety Report 25299892 (Version 2)
Quarter: 2025Q2

REPORT INFORMATION
  Report Type: Spontaneous
  Country: US (occurrence: US)
  Receive Date: 20250512
  Receipt Date: 20250620
  Transmission Date: 20250716
  Serious: Yes (Hospitalization, Other)
  Sender: CSL BEHRING
  Company Number: US-BEH-2025204211

PATIENT
  Age: 49 Year
  Sex: Male

DRUGS (5)
  1. HUMATE-P [Suspect]
     Active Substance: HUMAN COAGULATION FACTOR VIII/VON WILLEBRAND FACTOR COMPLEX
     Indication: Factor VIII deficiency
     Dosage: 2400 IU, TID (INFUSE 2400 F8 UNITS (2160-2640) SLOW IV PUSH EVERY 8 HOURS FOR 14 DAYS)
     Route: 042
     Dates: start: 202505
  2. RITONAVIR [Concomitant]
     Active Substance: RITONAVIR
  3. EMTRICITABINE AND TENOFOVIR DISOPROXIL FUMARATE [Concomitant]
     Active Substance: EMTRICITABINE\TENOFOVIR DISOPROXIL FUMARATE
  4. DARUNAVIR [Concomitant]
     Active Substance: DARUNAVIR
  5. ELOCTATE [Concomitant]
     Active Substance: EFMOROCTOCOG ALFA

REACTIONS (6)
  - Intervertebral disc protrusion [Unknown]
  - Dysstasia [Unknown]
  - Pain [Not Recovered/Not Resolved]
  - Muscle twitching [Unknown]
  - Haemarthrosis [Not Recovered/Not Resolved]
  - Gastrointestinal haemorrhage [Recovered/Resolved]

NARRATIVE: CASE EVENT DATE: 20250612
